FAERS Safety Report 7770962-3 (Version None)
Quarter: 2011Q3

REPORT INFORMATION
  Report Type: 
  Country: None (occurrence: None)
  Receive Date: 20110922
  Receipt Date: 20110217
  Transmission Date: 20111222
  Serious: No
  Sender: FDA-Public Use
  Company Number: US-ASTRAZENECA-2011SE09390

PATIENT
  Age: 26 Year
  Sex: Female
  Weight: 86.2 kg

DRUGS (3)
  1. KLONOPIN [Concomitant]
  2. SEROQUEL [Suspect]
     Indication: BIPOLAR DISORDER
     Dosage: 100 MG IN THE MORNING, 100 MG AT 3 PM AND 400 MG AT BED TIME
     Route: 048
  3. VICODIN [Concomitant]

REACTIONS (6)
  - DECREASED ACTIVITY [None]
  - DRUG DOSE OMISSION [None]
  - NAUSEA [None]
  - COLD SWEAT [None]
  - HYPERHIDROSIS [None]
  - MYALGIA [None]
